FAERS Safety Report 4526115-5 (Version None)
Quarter: 2004Q4

REPORT INFORMATION
  Report Type: 
  Country: None (occurrence: None)
  Receive Date: 20041213
  Receipt Date: 20041213
  Transmission Date: 20050328
  Serious: Yes (Hospitalization)
  Sender: FDA-Public Use
  Company Number: None

PATIENT
  Age: 83 Year
  Sex: Female
  Weight: 55.3388 kg

DRUGS (8)
  1. TARCEVA [Suspect]
     Indication: NON-SMALL CELL LUNG CANCER
     Dosage: 150MG   DAILY  BUCCAL
     Route: 002
     Dates: start: 20040122, end: 20040912
  2. ASPIRIN [Concomitant]
  3. HEPARIN [Concomitant]
  4. DIGOXIN [Concomitant]
  5. FUROSAMIDE [Concomitant]
  6. MONOPRIL [Concomitant]
  7. LOSARTAN [Concomitant]
  8. RAMIPRIL [Concomitant]

REACTIONS (2)
  - DYSPNOEA [None]
  - MYOCARDIAL ISCHAEMIA [None]
